FAERS Safety Report 6205823-4 (Version None)
Quarter: 2009Q2

REPORT INFORMATION
  Report Type: 
  Country: None (occurrence: None)
  Receive Date: 20090527
  Receipt Date: 20090501
  Transmission Date: 20091009
  Serious: No
  Sender: FDA-Public Use
  Company Number: US-ABBOTT-09P-163-0571038-00

PATIENT
  Sex: Female

DRUGS (2)
  1. SIMCOR [Suspect]
     Indication: DRUG USE FOR UNKNOWN INDICATION
     Dosage: 500/20MG EVERY NIGHT-USED TWO DOSES, ONE TAKEN IN MORNING, ONE TAKEN AT NIGHTTIME
     Dates: start: 20090301, end: 20090302
  2. BENICAR [Concomitant]
     Indication: DRUG USE FOR UNKNOWN INDICATION
     Dosage: 40/12.5MG DAILY
     Route: 048

REACTIONS (3)
  - DIZZINESS [None]
  - FLUSHING [None]
  - MALAISE [None]
